FAERS Safety Report 6167389-7 (Version None)
Quarter: 2009Q2

REPORT INFORMATION
  Report Type: 
  Country: None (occurrence: None)
  Receive Date: 20090424
  Receipt Date: 20090417
  Transmission Date: 20091009
  Serious: Yes (Hospitalization)
  Sender: FDA-Public Use
  Company Number: US-JNJFOC-20090404988

PATIENT
  Sex: Female
  Weight: 53.52 kg

DRUGS (12)
  1. LEVOFLOXACIN [Suspect]
     Indication: URINARY TRACT INFECTION
     Route: 065
  2. LEVOFLOXACIN [Suspect]
     Indication: SCARLET FEVER
     Route: 065
  3. HUMIRA [Suspect]
     Route: 058
  4. HUMIRA [Suspect]
     Indication: CROHN'S DISEASE
     Route: 058
  5. VANCOMYCIN HCL [Suspect]
     Indication: DRUG USE FOR UNKNOWN INDICATION
     Route: 065
  6. OS-CAL [Concomitant]
     Indication: MINERAL SUPPLEMENTATION
     Route: 065
  7. DROSPIRENONE [Concomitant]
     Indication: CONTRACEPTION
     Route: 065
  8. MULTI-VITAMIN [Concomitant]
     Indication: VITAMIN SUPPLEMENTATION
     Route: 065
  9. VACCINE [Concomitant]
     Indication: DRUG USE FOR UNKNOWN INDICATION
     Route: 065
  10. MENINGOCOCCAL POLYSACCHARIDE [Concomitant]
     Indication: DRUG USE FOR UNKNOWN INDICATION
     Route: 065
  11. CYANOCOBALAMIN-TANNIN COMPLEX [Concomitant]
     Indication: VITAMIN SUPPLEMENTATION
     Route: 065
  12. ERGOCALCIFEROL [Concomitant]
     Indication: DRUG USE FOR UNKNOWN INDICATION
     Route: 065

REACTIONS (9)
  - ADVERSE EVENT [None]
  - CONTUSION [None]
  - ERYTHEMA [None]
  - FALL [None]
  - GASTROOESOPHAGEAL REFLUX DISEASE [None]
  - LIVER FUNCTION TEST ABNORMAL [None]
  - SYNCOPE [None]
  - TOOTH LOSS [None]
  - VIRAL INFECTION [None]
